FAERS Safety Report 4838125-9 (Version None)
Quarter: 2005Q4

REPORT INFORMATION
  Report Type: 
  Country: None (occurrence: None)
  Receive Date: 20051121
  Receipt Date: 20051109
  Transmission Date: 20060501
  Serious: Yes (Other)
  Sender: FDA-Public Use
  Company Number: 200510006BCA

PATIENT
  Age: 34 Year
  Sex: Male
  Weight: 70 kg

DRUGS (18)
  1. GAMUNEX [Suspect]
     Indication: HYPOGAMMAGLOBULINAEMIA
     Dosage: SEE IMAGE
     Route: 042
     Dates: start: 20040801, end: 20041101
  2. GAMUNEX [Suspect]
     Indication: IDIOPATHIC THROMBOCYTOPENIC PURPURA
     Dosage: SEE IMAGE
     Route: 042
     Dates: start: 20040801, end: 20041101
  3. GAMUNEX [Suspect]
     Indication: HYPOGAMMAGLOBULINAEMIA
     Dosage: SEE IMAGE
     Route: 042
     Dates: start: 19970101
  4. GAMUNEX [Suspect]
     Indication: IDIOPATHIC THROMBOCYTOPENIC PURPURA
     Dosage: SEE IMAGE
     Route: 042
     Dates: start: 19970101
  5. GAMUNEX [Suspect]
  6. GAMUNEX [Suspect]
  7. GAMUNEX [Suspect]
  8. GAMUNEX [Suspect]
  9. GAMUNEX [Suspect]
  10. GAMUNEX [Suspect]
  11. GAMUNEX [Suspect]
  12. GAMUNEX [Suspect]
  13. ZINC [Concomitant]
  14. PREDNISONE [Concomitant]
  15. BIAXIN [Concomitant]
  16. LASIX [Concomitant]
  17. SPIROLACTONE [Concomitant]
  18. IRON [Concomitant]

REACTIONS (1)
  - RHESUS ANTIBODIES POSITIVE [None]
